FAERS Safety Report 5379840-0 (Version None)
Quarter: 2007Q3

REPORT INFORMATION
  Report Type: 
  Country: None (occurrence: None)
  Receive Date: 20070706
  Receipt Date: 20070703
  Transmission Date: 20080115
  Serious: Yes (Life-Threatening, Hospitalization)
  Sender: FDA-Public Use
  Company Number: IT-BRISTOL-MYERS SQUIBB COMPANY-13818091

PATIENT
  Age: 71 Year
  Sex: Female

DRUGS (6)
  1. COUMADIN [Suspect]
     Indication: ATRIAL FIBRILLATION
     Dates: start: 20070420, end: 20070601
  2. ALLOPURINOL [Suspect]
     Indication: HYPERURICAEMIA
     Dates: start: 20070424, end: 20070525
  3. LASIX [Concomitant]
     Route: 048
     Dates: start: 20070424, end: 20070612
  4. LANOXIN [Concomitant]
     Route: 048
     Dates: start: 20070424, end: 20070612
  5. BISOPROLOL [Concomitant]
     Route: 048
     Dates: start: 20070424, end: 20070612
  6. ZOLPIDEM TARTRATE [Concomitant]

REACTIONS (4)
  - DERMATITIS EXFOLIATIVE GENERALISED [None]
  - RENAL FAILURE [None]
  - SHOCK [None]
  - STOMATITIS [None]
